FAERS Safety Report 19120948 (Version 1)
Quarter: 2021Q2

REPORT INFORMATION
  Report Type: Spontaneous
  Country: US (occurrence: US)
  Receive Date: 20210412
  Receipt Date: 20210412
  Transmission Date: 20210717
  Serious: Yes (Other)
  Sender: FDA-Public Use
  Company Number: None

PATIENT
  Age: 48 Year
  Sex: Female
  Weight: 83.25 kg

DRUGS (18)
  1. KEVZARA [Suspect]
     Active Substance: SARILUMAB
     Indication: RHEUMATOID ARTHRITIS
     Dosage: ?          QUANTITY:1 INJECTION(S);OTHER FREQUENCY:BI?WEEKLY;?
     Route: 058
     Dates: start: 20201210
  2. KEVZARA [Suspect]
     Active Substance: SARILUMAB
     Indication: BEHCET^S SYNDROME
     Dosage: ?          QUANTITY:1 INJECTION(S);OTHER FREQUENCY:BI?WEEKLY;?
     Route: 058
     Dates: start: 20201210
  3. REQUIP [Concomitant]
     Active Substance: ROPINIROLE HYDROCHLORIDE
  4. FOLIC ACID. [Concomitant]
     Active Substance: FOLIC ACID
  5. TRAZODONE [Concomitant]
     Active Substance: TRAZODONE HYDROCHLORIDE
  6. OXYIR [Concomitant]
     Active Substance: OXYCODONE HYDROCHLORIDE
  7. VITAMIN D3 [Concomitant]
     Active Substance: CHOLECALCIFEROL
  8. XTAMPZA XR [Concomitant]
  9. BIOTIN [Concomitant]
     Active Substance: BIOTIN
  10. MVI [Concomitant]
     Active Substance: VITAMINS
  11. MTX [Concomitant]
     Active Substance: METHOTREXATE SODIUM
  12. TOPAMAX [Concomitant]
     Active Substance: TOPIRAMATE
  13. BELSOMRA [Concomitant]
     Active Substance: SUVOREXANT
  14. GABAPENTIN. [Concomitant]
     Active Substance: GABAPENTIN
  15. ZANAFLEX [Concomitant]
     Active Substance: TIZANIDINE HYDROCHLORIDE
  16. K?DUR [Concomitant]
     Active Substance: POTASSIUM CHLORIDE
  17. LUTEIN [Concomitant]
     Active Substance: LUTEIN
  18. LASIX [Concomitant]
     Active Substance: FUROSEMIDE

REACTIONS (3)
  - Skin lesion [None]
  - Impaired healing [None]
  - Alopecia [None]

NARRATIVE: CASE EVENT DATE: 20201210
